FAERS Safety Report 8526501 (Version 2)
Quarter: 2012Q4

REPORT INFORMATION
  Report Type: 
  Country: FR (occurrence: FR)
  Receive Date: 20120423
  Receipt Date: 20121022
  Transmission Date: 20130627
  Serious: Yes (Other)
  Sender: FDA-Public Use
  Company Number: FR-PFIZER INC-2012094476

PATIENT
  Age: 5 Year
  Sex: Female

DRUGS (5)
  1. TRIFLUCAN [Suspect]
     Indication: FUNGAL INFECTION
     Dosage: UNK
     Route: 042
     Dates: start: 20120217, end: 20120227
  2. CLAFORAN [Suspect]
     Indication: LUNG DISORDER
     Dosage: UNK
     Route: 042
     Dates: start: 20120131, end: 20120315
  3. RIFADINE [Suspect]
     Indication: LUNG DISORDER
     Dosage: UNK
     Route: 042
     Dates: start: 20120131, end: 20120315
  4. FUNGIZONE [Suspect]
     Indication: FUNGAL INFECTION
     Dosage: UNK
     Route: 042
     Dates: start: 20120218, end: 20120225
  5. JOSAMYCIN [Suspect]
     Indication: LUNG DISORDER
     Dosage: UNK
     Route: 048
     Dates: start: 20120131, end: 20120215

REACTIONS (4)
  - Rash maculo-papular [Recovered/Resolved]
  - Pyrexia [Recovered/Resolved]
  - Eosinophilia [Recovered/Resolved]
  - Drug reaction with eosinophilia and systemic symptoms [Recovered/Resolved]
